FAERS Safety Report 20367286 (Version 1)
Quarter: 2022Q1

REPORT INFORMATION
  Report Type: Spontaneous
  Country: TR (occurrence: TR)
  Receive Date: 20220123
  Receipt Date: 20220123
  Transmission Date: 20220424
  Serious: Yes (Other)
  Sender: FDA-Public Use
  Company Number: TR-SUN PHARMACEUTICAL INDUSTRIES LTD-2022R1-323982

PATIENT
  Age: 4 Month
  Sex: Male

DRUGS (4)
  1. PREDNISONE [Suspect]
     Active Substance: PREDNISONE
     Indication: Chemotherapy
     Dosage: 40 MILLIGRAM/SQ. METER, DAILY IN 3 DOSES 1-5 EVERY 3 WEEKS
     Route: 065
  2. VINBLASTINE [Suspect]
     Active Substance: VINBLASTINE
     Indication: Chemotherapy
     Dosage: 6 MILLIGRAM/SQ. METER, WEEKLY
     Route: 042
  3. VINBLASTINE [Suspect]
     Active Substance: VINBLASTINE
     Dosage: 6 MILLIGRAM/SQ. METER, WEEKLY DAY 1 EVERY 3 WEEKS UNTIL END OF MONTH 12
     Route: 042
  4. MERCAPTOPURINE [Concomitant]
     Active Substance: MERCAPTOPURINE
     Indication: Chemotherapy
     Dosage: 50 MILLIGRAM/SQ. METER, DAILY
     Route: 048

REACTIONS (5)
  - Pancytopenia [Unknown]
  - Hypoalbuminaemia [Unknown]
  - Hepatosplenomegaly [Unknown]
  - Condition aggravated [Unknown]
  - Rash [Unknown]
